FAERS Safety Report 6994656-7 (Version None)
Quarter: 2010Q3

REPORT INFORMATION
  Report Type: 
  Country: None (occurrence: None)
  Receive Date: 20100914
  Receipt Date: 20100914
  Transmission Date: 20110219
  Serious: Yes (Life-Threatening, Hospitalization)
  Sender: FDA-Public Use
  Company Number: None

PATIENT
  Sex: Male
  Weight: 131 kg

DRUGS (8)
  1. SULFAMETHOXAZOLE AND TRIMETHOPRIM TABLETS 800/160MG DS AMNEAL PHARMAEU [Suspect]
     Indication: DIABETIC FOOT
     Dosage: 1 TABLET (800/160MG) EVERY 12 HOURS ORAL 8/13/2010 8:30PM -  8/18/10 8:30AM
     Route: 048
     Dates: start: 20100813, end: 20100818
  2. SULFAMETHOXAZOLE AND TRIMETHOPRIM TABLETS 800/160MG DS AMNEAL PHARMAEU [Suspect]
     Indication: WOUND SECRETION
     Dosage: 1 TABLET (800/160MG) EVERY 12 HOURS ORAL 8/13/2010 8:30PM -  8/18/10 8:30AM
     Route: 048
     Dates: start: 20100813, end: 20100818
  3. CHRONIC MEDICATIONS: INSULIN GLARGINE [Concomitant]
  4. INSULIN ASPART [Concomitant]
  5. OMEPRAZOLE [Concomitant]
  6. LYRICA [Concomitant]
  7. VICODIN [Concomitant]
  8. ARTIFICIAL TEARS [Concomitant]

REACTIONS (2)
  - HYPERKALAEMIA [None]
  - RENAL IMPAIRMENT [None]
